FAERS Safety Report 23697570 (Version 1)
Quarter: 2024Q2

REPORT INFORMATION
  Report Type: Spontaneous
  Country: US (occurrence: None)
  Receive Date: 20240401
  Receipt Date: 20240401
  Transmission Date: 20240715
  Serious: No
  Sender: FDA-Public Use
  Company Number: None

PATIENT
  Age: 44 Year
  Sex: Female

DRUGS (10)
  1. OFEV [Suspect]
     Active Substance: NINTEDANIB
     Indication: Interstitial lung disease
     Dosage: 150MG BID ORAL
     Route: 048
     Dates: start: 20191204, end: 20231012
  2. SPIRONOLACTONE [Concomitant]
     Active Substance: SPIRONOLACTONE
  3. MAGNESIUM OXIDE [Concomitant]
     Active Substance: MAGNESIUM OXIDE
  4. TORSEMIDE [Concomitant]
     Active Substance: TORSEMIDE
  5. SILDENAFIL [Concomitant]
     Active Substance: SILDENAFIL
  6. BENZONATATE [Concomitant]
     Active Substance: BENZONATATE
  7. ONDANSETRON [Concomitant]
     Active Substance: ONDANSETRON
  8. NIFEDIPINE [Concomitant]
     Active Substance: NIFEDIPINE
  9. GABAPENTIN [Concomitant]
     Active Substance: GABAPENTIN
  10. POTASSIUM CHLORIDE [Concomitant]

REACTIONS (3)
  - Fatigue [None]
  - Gait inability [None]
  - Bronchospasm [None]

NARRATIVE: CASE EVENT DATE: 20231012
